FAERS Safety Report 10972473 (Version 1)
Quarter: 2015Q1

REPORT INFORMATION
  Report Type: Report from Study
  Country: IT (occurrence: IT)
  Receive Date: 20150331
  Receipt Date: 20150331
  Transmission Date: 20150721
  Serious: Yes (Other)
  Sender: FDA-Public Use
  Company Number: IT-BRISTOL-MYERS SQUIBB COMPANY-19853035

PATIENT
  Age: 55 Year
  Sex: Female
  Weight: 66 kg

DRUGS (4)
  1. MESALAZINE [Concomitant]
     Active Substance: MESALAMINE
     Dosage: 13NOV13-16NOV13; 21NOV13:2400MM
     Dates: start: 20131113
  2. DEXAMETHASONE. [Concomitant]
     Active Substance: DEXAMETHASONE
     Dosage: 4NOV-6NOV13:8MG; 7NOV-12NOV13:4MG; 13NOV13:16MG; 14NOV-15NOV13:8MG; 16NOV-20NOV13:4MG; 21NOV13:16MG
     Dates: start: 20131104
  3. IPILIMUMAB [Suspect]
     Active Substance: IPILIMUMAB
     Indication: MALIGNANT MELANOMA
     Route: 042
  4. NIVOLUMAB [Suspect]
     Active Substance: NIVOLUMAB
     Indication: MALIGNANT MELANOMA
     Dosage: 1DF:1.0/3.0 MG/KG
     Route: 042
     Dates: start: 20131029, end: 20131029

REACTIONS (1)
  - Diarrhoea [Recovered/Resolved]

NARRATIVE: CASE EVENT DATE: 20131120
